FAERS Safety Report 6174684-4 (Version None)
Quarter: 2009Q2

REPORT INFORMATION
  Report Type: 
  Country: None (occurrence: None)
  Receive Date: 20090430
  Receipt Date: 20090424
  Transmission Date: 20091009
  Serious: Yes (Other)
  Sender: FDA-Public Use
  Company Number: US-AMGEN-KDL344494

PATIENT
  Sex: Male
  Weight: 69.5 kg

DRUGS (3)
  1. PROCRIT [Suspect]
     Indication: DIALYSIS
     Route: 058
  2. RAMIPRIL [Concomitant]
  3. HUMALOG [Concomitant]
     Route: 058

REACTIONS (5)
  - ASTHENIA [None]
  - HAEMOGLOBIN INCREASED [None]
  - HAEMORRHAGE [None]
  - HEART RATE DECREASED [None]
  - URINARY RETENTION [None]
